FAERS Safety Report 17251387 (Version 1)
Quarter: 2020Q1

REPORT INFORMATION
  Report Type: Spontaneous
  Country: US (occurrence: US)
  Receive Date: 20200108
  Receipt Date: 20200108
  Transmission Date: 20200409
  Serious: Yes (Life-Threatening, Hospitalization, Disabling)
  Sender: FDA-Public Use
  Company Number: None

PATIENT
  Age: 62 Year
  Sex: Male
  Weight: 92.1 kg

DRUGS (5)
  1. METHOCARBAMOL 750MG TID [Concomitant]
  2. OXYCODONE 5MG Q 6 H PRN [Concomitant]
  3. RANITIDINE 150MG BID [Concomitant]
     Active Substance: RANITIDINE
  4. MELOXICAM 15MG DAILY [Concomitant]
  5. ADALIMUMAB [Suspect]
     Active Substance: ADALIMUMAB
     Indication: ANKYLOSING SPONDYLITIS
     Dosage: ?          OTHER FREQUENCY:EVERY 2 WEEKS;?
     Dates: start: 20180101, end: 20180801

REACTIONS (7)
  - Bacterial abscess central nervous system [None]
  - Visual field defect [None]
  - Hallucination, visual [None]
  - Chills [None]
  - Night sweats [None]
  - Brain abscess [None]
  - Photopsia [None]

NARRATIVE: CASE EVENT DATE: 20180731
